FAERS Safety Report 9000556 (Version 1)
Quarter: 2012Q4

REPORT INFORMATION
  Report Type: Spontaneous
  Country: NO (occurrence: None)
  Receive Date: 20121221
  Receipt Date: 20121221
  Transmission Date: 20130627
  Serious: Yes (Hospitalization)
  Sender: FDA-Public Use
  Company Number: AUR-APL-2012-05360

PATIENT
  Age: 89 Year
  Sex: Male

DRUGS (13)
  1. SIMVASTATIN (SIMVASTATIN) [Suspect]
     Indication: DRUG USE FOR UNKNOWN INDICATION
     Dosage: 1 D
  2. SELO-ZOK [Suspect]
     Indication: DRUG USE FOR UNKNOWN INDICATION
  3. FUCIDIN [Suspect]
     Indication: WOUND INFECTION
     Dates: start: 20121004, end: 20121012
  4. TRIATEC (RAMIPRIL) [Suspect]
     Indication: DRUG USE FOR UNKNOWN INDICATION
  5. DICLOCIL [Suspect]
     Indication: WOUND INFECTION
     Dates: start: 20121004, end: 20121012
  6. DIURAL [Suspect]
     Indication: DRUG USE FOR UNKNOWN INDICATION
     Dosage: 1 D
  7. KALEORID [Suspect]
     Indication: DRUG USE FOR UNKNOWN INDICATION
  8. SOMAC [Suspect]
     Indication: DRUG USE FOR UNKNOWN INDICATION
  9. HIRUDOID (HEPARINOID) [Concomitant]
  10. NIFEREX (IRON) [Concomitant]
  11. PLAVIX (CLOPIDOGREL) [Concomitant]
  12. TRIOBE (TRIOBE) [Concomitant]
  13. IRON DEXTRAN (IRON DEXTRAN) [Concomitant]

REACTIONS (3)
  - Blood pressure systolic decreased [None]
  - Blood creatine increased [None]
  - Myoglobin blood increased [None]
